FAERS Safety Report 21496871 (Version 1)
Quarter: 2022Q4

REPORT INFORMATION
  Report Type: Report from Study
  Country: US (occurrence: US)
  Receive Date: 20221022
  Receipt Date: 20221022
  Transmission Date: 20230113
  Serious: Yes (Death, Hospitalization, Other)
  Sender: FDA-Public Use
  Company Number: US-BoehringerIngelheim-2022-BI-154775

PATIENT
  Age: 79 Year
  Sex: Male

DRUGS (1)
  1. OFEV [Suspect]
     Active Substance: NINTEDANIB
     Indication: Idiopathic pulmonary fibrosis
     Dosage: LOT NO: 102164, 102653
     Route: 048
     Dates: start: 20220126

REACTIONS (15)
  - Death [Fatal]
  - Lung neoplasm malignant [Unknown]
  - Fall [Unknown]
  - COVID-19 [Unknown]
  - Constipation [Recovered/Resolved]
  - Illness [Recovering/Resolving]
  - Weight decreased [Unknown]
  - Appetite disorder [Unknown]
  - Diarrhoea [Not Recovered/Not Resolved]
  - Decreased appetite [Recovering/Resolving]
  - Lymphadenopathy [Unknown]
  - Arthralgia [Unknown]
  - Dyspnoea [Unknown]
  - Panic attack [Unknown]
  - Malaise [Unknown]

NARRATIVE: CASE EVENT DATE: 20220101
